FAERS Safety Report 23637956 (Version 2)
Quarter: 2024Q1

REPORT INFORMATION
  Report Type: Spontaneous
  Country: IT (occurrence: IT)
  Receive Date: 20240315
  Receipt Date: 20240319
  Transmission Date: 20240409
  Serious: Yes (Other)
  Sender: FDA-Public Use
  Company Number: IT-PTC THERAPEUTICS INC.-IT-2024PTC000381

PATIENT
  Age: 8 Year
  Sex: Male

DRUGS (3)
  1. ATALUREN [Suspect]
     Active Substance: ATALUREN
     Indication: Duchenne muscular dystrophy
     Route: 065
  2. ATALUREN [Suspect]
     Active Substance: ATALUREN
     Dosage: UNK
     Route: 065
  3. DEFLAZACORT [Suspect]
     Active Substance: DEFLAZACORT
     Route: 065

REACTIONS (8)
  - Dilated cardiomyopathy [Unknown]
  - Asthenia [Unknown]
  - General physical health deterioration [Unknown]
  - Gait inability [Unknown]
  - Cardiomyopathy [Recovering/Resolving]
  - Osteoporosis [Unknown]
  - Weight increased [Unknown]
  - Off label use [Unknown]
